FAERS Safety Report 5774980-6 (Version None)
Quarter: 2008Q2

REPORT INFORMATION
  Report Type: 
  Country: None (occurrence: None)
  Receive Date: 20080617
  Receipt Date: 20080605
  Transmission Date: 20081010
  Serious: Yes (Other)
  Sender: FDA-Public Use
  Company Number: PHBS2008IE02365

PATIENT

DRUGS (1)
  1. ZOMETA [Suspect]

REACTIONS (2)
  - DENTAL OPERATION [None]
  - OSTEONECROSIS [None]
